FAERS Safety Report 11648168 (Version 1)
Quarter: 2015Q4

REPORT INFORMATION
  Report Type: Spontaneous
  Country: US (occurrence: None)
  Receive Date: 20151020
  Receipt Date: 20151020
  Transmission Date: 20160304
  Serious: Yes (Other)
  Sender: FDA-Public Use
  Company Number: None

PATIENT
  Age: 86 Year
  Sex: Male
  Weight: 68.04 kg

DRUGS (6)
  1. VITAMIN B12 [Concomitant]
     Active Substance: CYANOCOBALAMIN
  2. CARDURA [Concomitant]
     Active Substance: DOXAZOSIN MESYLATE
  3. CENTRUM SILVER [Concomitant]
     Active Substance: MINERALS\VITAMINS
  4. REFRESH TEARS [Suspect]
     Active Substance: CARBOXYMETHYLCELLULOSE SODIUM
     Indication: DRY EYE
     Dosage: DROP IN EACH EYE  AS NEEDED  INTO THE EYE?DURATION: 10 OR MORE YEARS
  5. VITAMIN 6 [Concomitant]
  6. FOLIC ACID. [Concomitant]
     Active Substance: FOLIC ACID

REACTIONS (4)
  - Instillation site pain [None]
  - Visual impairment [None]
  - Vision blurred [None]
  - Incorrect product storage [None]

NARRATIVE: CASE EVENT DATE: 20150811
